FAERS Safety Report 5678409-8 (Version None)
Quarter: 2008Q1

REPORT INFORMATION
  Report Type: 
  Country: None (occurrence: None)
  Receive Date: 20080320
  Receipt Date: 20080312
  Transmission Date: 20080703
  Serious: Yes (Hospitalization)
  Sender: FDA-Public Use
  Company Number: 2008AL001587

PATIENT
  Age: 16 Year
  Sex: Female

DRUGS (2)
  1. CARISOPRODOL [Suspect]
     Dosage: PO
     Route: 048
  2. OXYCODONE HCL [Concomitant]

REACTIONS (9)
  - ANXIETY [None]
  - DRUG WITHDRAWAL SYNDROME [None]
  - FEELING JITTERY [None]
  - HALLUCINATIONS, MIXED [None]
  - INAPPROPRIATE SCHEDULE OF DRUG ADMINISTRATION [None]
  - INCORRECT DOSE ADMINISTERED [None]
  - INSOMNIA [None]
  - PSYCHOTIC DISORDER [None]
  - TREMOR [None]
